FAERS Safety Report 4653373-9 (Version None)
Quarter: 2005Q2

REPORT INFORMATION
  Report Type: 
  Country: None (occurrence: None)
  Receive Date: 20050503
  Receipt Date: 20050420
  Transmission Date: 20051028
  Serious: Yes (Other)
  Sender: FDA-Public Use
  Company Number: SUS1-2005-00337

PATIENT
  Age: 29 Year
  Sex: Female

DRUGS (9)
  1. ADDERALL 10 [Suspect]
     Dosage: 20 MG DAILY, ORAL
     Route: 048
  2. ACETAMINOPHEN [Concomitant]
  3. CLONAZEPAM [Concomitant]
  4. VALPROATE SODIUM [Concomitant]
  5. SALBUTAMOL (SALBUTAMOL) [Concomitant]
  6. VENLAFAXINE HCL [Concomitant]
  7. XENICAL [Concomitant]
  8. ZOPICLONE (ZOPICLONE) [Concomitant]
  9. SEROQUEL [Concomitant]

REACTIONS (2)
  - ERYTHEMA [None]
  - URTICARIA [None]
